FAERS Safety Report 8114892-6 (Version None)
Quarter: 2012Q1

REPORT INFORMATION
  Report Type: 
  Country: None (occurrence: None)
  Receive Date: 20120206
  Receipt Date: 20120125
  Transmission Date: 20120608
  Serious: Yes (Other)
  Sender: FDA-Public Use
  Company Number: CA-JNJFOC-20120200883

PATIENT
  Sex: Female
  Weight: 96 kg

DRUGS (4)
  1. REMICADE [Suspect]
     Indication: PRODUCT USED FOR UNKNOWN INDICATION
     Dosage: 100 MG/VIAL
     Route: 042
     Dates: start: 20081218
  2. WELLBUTRIN [Concomitant]
     Route: 065
  3. IBUPROFEN (ADVIL) [Concomitant]
     Route: 065
  4. SYNTHROID [Concomitant]
     Route: 065

REACTIONS (1)
  - PERICARDITIS [None]
